FAERS Safety Report 14829545 (Version 2)
Quarter: 2018Q3

REPORT INFORMATION
  Report Type: Spontaneous
  Country: US (occurrence: US)
  Receive Date: 20180430
  Receipt Date: 20180925
  Transmission Date: 20181010
  Serious: Yes (Other)
  Sender: FDA-Public Use
  Company Number: US-TAKEDA-2018TUS014253

PATIENT
  Age: 61 Year
  Sex: Female

DRUGS (30)
  1. COENZYME Q10 [Concomitant]
     Active Substance: UBIDECARENONE
     Indication: CARDIAC DISORDER
  2. VITAMIN C [Concomitant]
     Active Substance: ASCORBIC ACID
     Indication: ANTIVIRAL PROPHYLAXIS
  3. ASPIRIN                            /00002701/ [Concomitant]
     Active Substance: ASPIRIN
     Indication: CARDIAC DISORDER
     Dosage: UNK
  4. AMOXICILLIN. [Concomitant]
     Active Substance: AMOXICILLIN
     Dosage: UNK
     Dates: start: 20171108
  5. AZITHROMYCIN ANHYDROUS. [Concomitant]
     Active Substance: AZITHROMYCIN ANHYDROUS
     Indication: SINUSITIS
     Dosage: UNK
     Dates: start: 20160118
  6. FERROUS SULFATE. [Concomitant]
     Active Substance: FERROUS SULFATE
     Indication: IRON DEFICIENCY
     Dosage: UNK
     Dates: start: 20150319
  7. FERROUS SULFATE. [Concomitant]
     Active Substance: FERROUS SULFATE
     Dosage: UNK
     Dates: start: 20171128
  8. DEXILANT [Suspect]
     Active Substance: DEXLANSOPRAZOLE
     Indication: GASTROOESOPHAGEAL REFLUX DISEASE
     Dosage: 60 MG, BID
     Route: 048
     Dates: start: 2011
  9. LORATADINE. [Concomitant]
     Active Substance: LORATADINE
     Indication: HYPERSENSITIVITY
     Dosage: UNK
  10. GLUCOSAMINE [Concomitant]
     Active Substance: GLUCOSAMINE
     Indication: ARTHROPATHY
     Dosage: UNK
     Dates: start: 2000, end: 2013
  11. ALENDRONATE SODIUM. [Concomitant]
     Active Substance: ALENDRONATE SODIUM
     Indication: OSTEOPOROSIS
     Dosage: UNK
     Dates: start: 2009, end: 2013
  12. DULOXETINE. [Concomitant]
     Active Substance: DULOXETINE
     Indication: ANXIETY
     Dosage: UNK
  13. AMOXICILLIN. [Concomitant]
     Active Substance: AMOXICILLIN
     Indication: DENTAL OPERATION
     Dosage: UNK
     Dates: start: 20130110
  14. ATORVASTATIN [Concomitant]
     Active Substance: ATORVASTATIN
     Indication: BLOOD CHOLESTEROL
     Dosage: UNK
     Dates: start: 20140922
  15. CLONAZEPAM. [Concomitant]
     Active Substance: CLONAZEPAM
     Indication: NIGHTMARE
  16. ACETAMINOPHEN. [Concomitant]
     Active Substance: ACETAMINOPHEN
     Indication: PAIN
     Dosage: UNK
     Dates: start: 20171118, end: 20171128
  17. COENZYME Q10 [Concomitant]
     Active Substance: UBIDECARENONE
     Indication: MUSCLE SPASMS
     Dosage: UNK
  18. CALCIUM WITH VITAMIN D             /00944201/ [Concomitant]
     Active Substance: CALCIUM CARBONATE\CHOLECALCIFEROL
     Indication: BONE DISORDER
     Dosage: UNK
  19. VITAMIN C [Concomitant]
     Active Substance: ASCORBIC ACID
     Indication: NASOPHARYNGITIS
  20. CYMBALTA [Concomitant]
     Active Substance: DULOXETINE HYDROCHLORIDE
     Indication: ANXIETY
     Dosage: UNK
  21. HYDROCHLOROTHIAZIDE. [Concomitant]
     Active Substance: HYDROCHLOROTHIAZIDE
     Dosage: UNK
     Dates: start: 20080126
  22. NEXIUM [Suspect]
     Active Substance: ESOMEPRAZOLE MAGNESIUM
     Indication: GASTROOESOPHAGEAL REFLUX DISEASE
     Dosage: 40 MG, BID
     Route: 048
     Dates: start: 2007, end: 2014
  23. MULTI?VITAMINS VITAFIT [Concomitant]
     Active Substance: VITAMINS
     Indication: ROUTINE HEALTH MAINTENANCE
     Dosage: UNK
  24. GINGER                             /01646602/ [Concomitant]
     Indication: MOTION SICKNESS
  25. DHEA [Concomitant]
     Active Substance: PRASTERONE
     Indication: HORMONE THERAPY
     Dosage: UNK
     Dates: start: 201204, end: 201508
  26. HYDROCHLOROTHIAZIDE. [Concomitant]
     Active Substance: HYDROCHLOROTHIAZIDE
     Indication: BLOOD PRESSURE MEASUREMENT
     Dosage: UNK
     Dates: start: 20080111
  27. HYDROCHLOROTHIAZIDE. [Concomitant]
     Active Substance: HYDROCHLOROTHIAZIDE
     Dosage: UNK
     Dates: start: 20080302
  28. HYDROCODONE [Concomitant]
     Active Substance: HYDROCODONE
     Indication: PAIN
     Dosage: UNK
     Dates: start: 20171118, end: 20171128
  29. AMOXICILLIN. [Concomitant]
     Active Substance: AMOXICILLIN
     Dosage: UNK
     Dates: start: 20080220
  30. AMOXYCILLIN TRIHYDRATE [Concomitant]
     Active Substance: AMOXICILLIN
     Dosage: UNK
     Dates: start: 20150409

REACTIONS (1)
  - Chronic kidney disease [Unknown]

NARRATIVE: CASE EVENT DATE: 201503
